FAERS Safety Report 12982316 (Version 1)
Quarter: 2016Q4

REPORT INFORMATION
  Report Type: Spontaneous
  Country: US (occurrence: US)
  Receive Date: 20161128
  Receipt Date: 20161128
  Transmission Date: 20170207
  Serious: Yes (Hospitalization, Disabling)
  Sender: FDA-Public Use
  Company Number: None

PATIENT
  Age: 84 Year
  Sex: Female
  Weight: 51.3 kg

DRUGS (20)
  1. BEVACIZUMAB [Concomitant]
     Active Substance: BEVACIZUMAB
  2. APREPITANT. [Concomitant]
     Active Substance: APREPITANT
  3. NEULASTA [Concomitant]
     Active Substance: PEGFILGRASTIM
  4. LIDOCAINE-PRILOCAINE [Concomitant]
     Active Substance: LIDOCAINE\PRILOCAINE
  5. RISAQUAD [Concomitant]
  6. OXALIPLATIN. [Concomitant]
     Active Substance: OXALIPLATIN
  7. SUPPORTIVE CARE [Concomitant]
  8. DEXAMETHASONE. [Concomitant]
     Active Substance: DEXAMETHASONE
  9. LEVOTHYROXINE. [Concomitant]
     Active Substance: LEVOTHYROXINE
  10. OMEPRAZOLE. [Concomitant]
     Active Substance: OMEPRAZOLE
  11. TRAZODONE [Concomitant]
     Active Substance: TRAZODONE HYDROCHLORIDE
  12. FERROUS SULFATE. [Concomitant]
     Active Substance: FERROUS SULFATE
  13. TOPICAL CREAM [Concomitant]
     Active Substance: UNSPECIFIED INGREDIENT
  14. MEGACE [Concomitant]
     Active Substance: MEGESTROL ACETATE
  15. FLUOROURACIL. [Suspect]
     Active Substance: FLUOROURACIL
     Indication: COLON CANCER STAGE IV
     Dosage: ?          OTHER FREQUENCY:EVERY 2 WEEKS;?
     Route: 040
     Dates: start: 20160817, end: 20161107
  16. ZOFRAN [Concomitant]
     Active Substance: ONDANSETRON HYDROCHLORIDE
  17. KYTRIL [Concomitant]
     Active Substance: GRANISETRON HYDROCHLORIDE
  18. FLUOROURACIL. [Suspect]
     Active Substance: FLUOROURACIL
     Indication: COLON CANCER STAGE IV
     Dosage: ?          OTHER FREQUENCY:EVERY 2 WEEKS;?
     Route: 041
     Dates: start: 20160817, end: 20161107
  19. CHEMOTHERAPY [Concomitant]
     Active Substance: UNSPECIFIED INGREDIENT
  20. LEUCOVORIN. [Concomitant]
     Active Substance: LEUCOVORIN

REACTIONS (3)
  - Dyspnoea [None]
  - Arteriospasm coronary [None]
  - Chest discomfort [None]

NARRATIVE: CASE EVENT DATE: 20161109
